FAERS Safety Report 20035273 (Version 1)
Quarter: 2021Q4

REPORT INFORMATION
  Report Type: Spontaneous
  Country: US (occurrence: US)
  Receive Date: 20211104
  Receipt Date: 20211104
  Transmission Date: 20220304
  Serious: No
  Sender: FDA-Public Use
  Company Number: US-009507513-2111USA000655

PATIENT
  Age: 82 Year
  Sex: Female

DRUGS (3)
  1. INTEGRILIN [Suspect]
     Active Substance: EPTIFIBATIDE
     Indication: Cerebral artery occlusion
     Dosage: 180 MCG/KG, IV INFUSION
     Route: 042
  2. INTEGRILIN [Suspect]
     Active Substance: EPTIFIBATIDE
     Indication: Intracranial artery dissection
  3. INTEGRILIN [Suspect]
     Active Substance: EPTIFIBATIDE
     Indication: Cerebral arteriosclerosis

REACTIONS (1)
  - Product use in unapproved indication [Unknown]
